FAERS Safety Report 12802500 (Version 8)
Quarter: 2019Q1

REPORT INFORMATION
  Report Type: Spontaneous
  Country: US (occurrence: US)
  Receive Date: 20161003
  Receipt Date: 20190122
  Transmission Date: 20190417
  Serious: No
  Sender: FDA-Public Use
  Company Number: US-PFIZER INC-2016459357

PATIENT
  Age: 45 Year
  Sex: Female
  Weight: 71 kg

DRUGS (4)
  1. GENOTROPIN [Suspect]
     Active Substance: SOMATROPIN
     Dosage: 0.5 MG, CYCLIC (6 DAYS A WEEK)
     Route: 058
     Dates: start: 20110718, end: 20180331
  2. HYDROCORTISONE. [Concomitant]
     Active Substance: HYDROCORTISONE
     Indication: HORMONE REPLACEMENT THERAPY
     Dosage: 25 MG, DAILY (10 MG IN MORNING, 10 MG AT NOON, AND 5 MG AT 3 PM)
     Route: 048
  3. THYROID [Concomitant]
     Active Substance: LEVOTHYROXINE\LIOTHYRONINE
     Indication: HORMONE REPLACEMENT THERAPY
     Dosage: UNK, ONCE DAILY
  4. GENOTROPIN [Suspect]
     Active Substance: SOMATROPIN
     Indication: HORMONE THERAPY
     Dosage: 0.6 MG, CYCLIC (6 DAYS A WEEK)
     Route: 058
     Dates: start: 20100217

REACTIONS (9)
  - Headache [Not Recovered/Not Resolved]
  - Device breakage [Unknown]
  - Head injury [Recovering/Resolving]
  - Photosensitivity reaction [Not Recovered/Not Resolved]
  - Hypoaesthesia [Unknown]
  - Fall [Recovered/Resolved]
  - Insulin-like growth factor increased [Unknown]
  - Product dose omission [Unknown]
  - Intentional product use issue [Unknown]

NARRATIVE: CASE EVENT DATE: 201606
